FAERS Safety Report 9913458 (Version 1)
Quarter: 2014Q1

REPORT INFORMATION
  Report Type: Spontaneous
  Country: CN (occurrence: CN)
  Receive Date: 20140220
  Receipt Date: 20140220
  Transmission Date: 20141002
  Serious: Yes (Congenital Anomaly)
  Sender: FDA-Public Use
  Company Number: CN-JNJFOC-20140209270

PATIENT
  Age: 0 None
  Sex: Female
  Weight: 2.5 kg

DRUGS (1)
  1. SPORANOX [Suspect]
     Indication: VAGINAL INFECTION
     Route: 064
     Dates: start: 20110802, end: 20110804

REACTIONS (4)
  - Ear malformation [Not Recovered/Not Resolved]
  - Ear congestion [Not Recovered/Not Resolved]
  - Foetal exposure during pregnancy [Recovered/Resolved]
  - Hypoacusis [Not Recovered/Not Resolved]
